FAERS Safety Report 8135463-1 (Version None)
Quarter: 2012Q1

REPORT INFORMATION
  Report Type: 
  Country: None (occurrence: None)
  Receive Date: 20120214
  Receipt Date: 20120207
  Transmission Date: 20120608
  Serious: Yes (Hospitalization)
  Sender: FDA-Public Use
  Company Number: FR-ROCHE-774625

PATIENT
  Sex: Female
  Weight: 42 kg

DRUGS (5)
  1. DOXORUBICIN HCL [Suspect]
     Indication: SARCOMA
     Dosage: LAST DOSE PRIOR TO SAE: 03 JUNE 2011, FORM REPORTED AS 60MG/M^2
     Route: 042
  2. IFOSFAMIDE [Suspect]
     Indication: SARCOMA
     Dosage: LAST DOSE PRIOR TO SAE: 03 JUN 2011, FORM REPORTED AS 6G/M^2
     Route: 042
  3. AVASTIN [Suspect]
     Indication: SARCOMA
     Dosage: LAST DOSE PRIOR TO SAE: 02 JUN 2011, FORM REPORTED AS 7.5MG/KG
     Route: 042
  4. DACTINOMYCIN [Suspect]
     Indication: SARCOMA
     Dosage: LAST DOSE PRIOR TO SAE: 02 JUN 2011, FORM REPORTED AS 1.5MG/M^2
     Route: 042
  5. VINCRISTINE [Suspect]
     Indication: SARCOMA
     Dosage: LAST DOSE PRIOR TO SAE: 02 JUNE 2011, FORM REPORTED AS 1.5MG/M^2
     Route: 042

REACTIONS (1)
  - FEBRILE BONE MARROW APLASIA [None]
